FAERS Safety Report 4401021-5 (Version None)
Quarter: 2004Q3

REPORT INFORMATION
  Report Type: 
  Country: None (occurrence: None)
  Receive Date: 20040907
  Receipt Date: 20030924
  Transmission Date: 20050211
  Serious: No
  Sender: FDA-Public Use
  Company Number: US-BRISTOL-MYERS SQUIBB COMPANY-12392700

PATIENT
  Age: 69 Year
  Sex: Female
  Weight: 57 kg

DRUGS (6)
  1. COUMADIN [Suspect]
     Indication: ATRIAL FIBRILLATION
     Dosage: DOSE VALUE:  5 MG FOR 5 DAYS OF THE WEEK, ALTERNATING WITH 2.5 MG THE OTHER 2 DAYS.
     Route: 048
  2. FOSAMAX [Concomitant]
  3. TOPROL-XL [Concomitant]
  4. LANOXIN [Concomitant]
  5. ZETIA [Concomitant]
  6. LIPITOR [Concomitant]

REACTIONS (1)
  - INTERNATIONAL NORMALISED RATIO INCREASED [None]
